FAERS Safety Report 26071713 (Version 1)
Quarter: 2025Q4

REPORT INFORMATION
  Report Type: Spontaneous
  Country: US (occurrence: US)
  Receive Date: 20251120
  Receipt Date: 20251120
  Transmission Date: 20260118
  Serious: No
  Sender: BRISTOL-MYERS SQUIBB COMPANY
  Company Number: US-BRISTOL-MYERS SQUIBB COMPANY-2025-149155

PATIENT

DRUGS (1)
  1. TROSPIUM CHLORIDE\XANOMELINE TARTRATE [Suspect]
     Active Substance: TROSPIUM CHLORIDE\XANOMELINE TARTRATE
     Indication: Product used for unknown indication
     Dosage: DOSE: 50/20 MG

REACTIONS (1)
  - Orthostatic hypotension [Unknown]
